FAERS Safety Report 12556681 (Version 2)
Quarter: 2016Q3

REPORT INFORMATION
  Report Type: Spontaneous
  Country: US (occurrence: US)
  Receive Date: 20160714
  Receipt Date: 20160714
  Transmission Date: 20161109
  Serious: No
  Sender: FDA-Public Use
  Company Number: US-UCBSA-2015028522

PATIENT
  Age: 20 Year
  Sex: Female

DRUGS (8)
  1. DIPHENHYDRAMINE. [Suspect]
     Active Substance: DIPHENHYDRAMINE
     Indication: URTICARIA CHRONIC
     Dosage: UNKNOWN DOSE
  2. ZYRTEC [Suspect]
     Active Substance: CETIRIZINE HYDROCHLORIDE
     Indication: URTICARIA CHRONIC
     Dosage: UNKNOWN DOSE
  3. HYDROXYZINE [Concomitant]
     Active Substance: HYDROXYZINE\HYDROXYZINE HYDROCHLORIDE
     Indication: URTICARIA CHRONIC
     Dosage: UNKNOWN DOSE
  4. MYCOPHENOLATE [Concomitant]
     Active Substance: MYCOPHENOLIC ACID
     Indication: URTICARIA CHRONIC
     Dosage: UNKNOWN DOSE
  5. LEVOCETIRIZINE [Suspect]
     Active Substance: LEVOCETIRIZINE
     Indication: URTICARIA CHRONIC
     Dosage: UNKNOWN DOSE
  6. PREDNISONE. [Concomitant]
     Active Substance: PREDNISONE
     Indication: PRODUCT USED FOR UNKNOWN INDICATION
     Dosage: UNKNOWN DOSE
  7. DOXEPIN [Concomitant]
     Active Substance: DOXEPIN
     Indication: URTICARIA CHRONIC
     Dosage: UNKNOWN DOSE
  8. FEXOFENADINE [Concomitant]
     Active Substance: FEXOFENADINE\FEXOFENADINE HYDROCHLORIDE
     Indication: URTICARIA CHRONIC
     Dosage: UNKNOWN DOSE

REACTIONS (1)
  - Drug ineffective [Unknown]
